FAERS Safety Report 6747636-0 (Version None)
Quarter: 2010Q2

REPORT INFORMATION
  Report Type: 
  Country: None (occurrence: None)
  Receive Date: 20100528
  Receipt Date: 20100517
  Transmission Date: 20101027
  Serious: No
  Sender: FDA-Public Use
  Company Number: US-B.I. PHARMACEUTICALS,INC./RIDGEFIELD-2010-BP-05668BP

PATIENT
  Sex: Female

DRUGS (7)
  1. ZANTAC 75 [Suspect]
     Indication: HIATUS HERNIA
     Dosage: 150 MG
     Route: 048
     Dates: start: 20100101, end: 20100101
  2. ZANTAC 75 [Suspect]
     Dosage: 300 MG
     Route: 048
     Dates: start: 20100101
  3. CYMBALTA [Concomitant]
     Indication: DEPRESSION
     Dosage: 90 MG
     Route: 048
  4. BUPROPION HCL [Concomitant]
     Indication: DEPRESSION
     Dosage: 150 MG
     Route: 048
  5. THYROID TAB [Concomitant]
     Indication: HYPOTHYROIDISM
     Dosage: 60 MG
     Route: 048
  6. ZYRTEC [Concomitant]
     Route: 048
  7. IBUPROFEN [Concomitant]
     Indication: PAIN
     Route: 048

REACTIONS (2)
  - FLATULENCE [None]
  - HIATUS HERNIA [None]
